FAERS Safety Report 12441634 (Version 1)
Quarter: 2016Q2

REPORT INFORMATION
  Report Type: Spontaneous
  Country: BR (occurrence: BR)
  Receive Date: 20160607
  Receipt Date: 20160607
  Transmission Date: 20160815
  Serious: Yes (Hospitalization)
  Sender: FDA-Public Use
  Company Number: BR-ROCHE-1768050

PATIENT
  Sex: Male

DRUGS (4)
  1. RIVOTRIL [Suspect]
     Active Substance: CLONAZEPAM
     Indication: INSOMNIA
     Route: 060
     Dates: start: 1999
  2. TYLENOL [Concomitant]
     Active Substance: ACETAMINOPHEN
  3. RIVOTRIL [Suspect]
     Active Substance: CLONAZEPAM
     Dosage: SOMEDAYS 1 TABLET, SOMEDAYS HALF TABLET
     Route: 060
     Dates: end: 20160510
  4. LIPITOR [Concomitant]
     Active Substance: ATORVASTATIN CALCIUM

REACTIONS (10)
  - Coronary artery disease [Unknown]
  - Irregular sleep phase [Not Recovered/Not Resolved]
  - Memory impairment [Not Recovered/Not Resolved]
  - Dysarthria [Not Recovered/Not Resolved]
  - Restlessness [Not Recovered/Not Resolved]
  - Compulsions [Not Recovered/Not Resolved]
  - Mood altered [Not Recovered/Not Resolved]
  - Irritability [Not Recovered/Not Resolved]
  - Withdrawal syndrome [Not Recovered/Not Resolved]
  - Self-medication [Unknown]
